FAERS Safety Report 4415802-5 (Version None)
Quarter: 2004Q2

REPORT INFORMATION
  Report Type: 
  Country: None (occurrence: None)
  Receive Date: 20040621
  Receipt Date: 20040318
  Transmission Date: 20050107
  Serious: Yes (Other)
  Sender: FDA-Public Use
  Company Number: A-US2004-05606

PATIENT
  Age: 72 Year
  Sex: Female

DRUGS (6)
  1. TRACLEER [Suspect]
     Indication: PULMONARY HYPERTENSION
     Dosage: 62.5 + 125 MG, BID, ORAL
     Route: 048
     Dates: start: 20020301, end: 20020401
  2. TRACLEER [Suspect]
     Indication: PULMONARY HYPERTENSION
     Dosage: 62.5 + 125 MG, BID, ORAL
     Route: 048
     Dates: start: 20020401, end: 20031201
  3. TRACLEER [Suspect]
     Indication: PULMONARY HYPERTENSION
     Dosage: 62.5 + 125 MG, BID, ORAL
     Route: 048
     Dates: start: 20031201, end: 20040315
  4. WARFARIN SODIUM [Concomitant]
  5. LEVOTHYROXINE SODIUM [Concomitant]
  6. VITAMIN B12 [Concomitant]

REACTIONS (3)
  - ALANINE AMINOTRANSFERASE INCREASED [None]
  - ASPARTATE AMINOTRANSFERASE INCREASED [None]
  - LIVER FUNCTION TEST ABNORMAL [None]
